FAERS Safety Report 6051907-3 (Version None)
Quarter: 2009Q1

REPORT INFORMATION
  Report Type: 
  Country: None (occurrence: None)
  Receive Date: 20090122
  Receipt Date: 20090122
  Transmission Date: 20090719
  Serious: Yes (Life-Threatening, Disabling)
  Sender: FDA-Public Use
  Company Number: None

PATIENT
  Age: 67 Year
  Sex: Female
  Weight: 43.5 kg

DRUGS (1)
  1. POSACONAZOLE [Suspect]
     Indication: FUNGAL INFECTION
     Dosage: POSACONAZOLE 400MG TWICE DAILY PO
     Route: 048

REACTIONS (1)
  - ELECTROCARDIOGRAM QT PROLONGED [None]
